FAERS Safety Report 10128301 (Version 1)
Quarter: 2014Q2

REPORT INFORMATION
  Report Type: Spontaneous
  Country: US (occurrence: US)
  Receive Date: 20140428
  Receipt Date: 20140428
  Transmission Date: 20141212
  Serious: No
  Sender: FDA-Public Use
  Company Number: US-BIOGENIDEC-2014BI036264

PATIENT
  Age: 42 Year
  Sex: Female
  Weight: 54 kg

DRUGS (11)
  1. TECFIDERA [Suspect]
     Indication: PRODUCT USED FOR UNKNOWN INDICATION
  2. AMPYRA [Concomitant]
     Indication: MULTIPLE SCLEROSIS
     Route: 048
     Dates: start: 201312
  3. AMPYRA [Concomitant]
     Indication: GAIT DISTURBANCE
     Route: 048
     Dates: start: 201312
  4. AMPYRA [Concomitant]
     Indication: MULTIPLE SCLEROSIS
     Route: 048
  5. AMPYRA [Concomitant]
     Indication: GAIT DISTURBANCE
     Route: 048
  6. BACLOFEN [Concomitant]
  7. OXYBUTYNIN [Concomitant]
  8. LEXAPRO [Concomitant]
  9. PROVIGIL [Concomitant]
  10. VITAMIN D [Concomitant]
  11. BABY ASPIRIN [Concomitant]

REACTIONS (4)
  - Balance disorder [Recovered/Resolved]
  - Dizziness [Recovered/Resolved]
  - Flushing [Not Recovered/Not Resolved]
  - Pruritus [Not Recovered/Not Resolved]
